FAERS Safety Report 5269197-8 (Version None)
Quarter: 2007Q1

REPORT INFORMATION
  Report Type: 
  Country: None (occurrence: None)
  Receive Date: 20070319
  Receipt Date: 20070306
  Transmission Date: 20070707
  Serious: Yes (Hospitalization)
  Sender: FDA-Public Use
  Company Number: DE-AMGEN-UK211642

PATIENT
  Age: 66 Year
  Sex: Female

DRUGS (4)
  1. NEUPOGEN [Suspect]
     Indication: DRUG USE FOR UNKNOWN INDICATION
     Route: 058
     Dates: start: 20070131
  2. FLUOROURACIL [Suspect]
     Dates: start: 20070119
  3. EPIRUBICIN [Suspect]
     Dates: start: 20070119
  4. CYCLOPHOSPHAMIDE [Suspect]
     Dates: start: 20070119

REACTIONS (4)
  - GENERAL PHYSICAL HEALTH DETERIORATION [None]
  - LEUKOPENIA [None]
  - MALAISE [None]
  - PYREXIA [None]
